FAERS Safety Report 9250027 (Version 2)
Quarter: 2013Q2

REPORT INFORMATION
  Report Type: Spontaneous
  Country: AT (occurrence: AT)
  Receive Date: 20130424
  Receipt Date: 20130509
  Transmission Date: 20140414
  Serious: Yes (Death)
  Sender: FDA-Public Use
  Company Number: AT-ROCHE-1217608

PATIENT
  Age: 80 Year
  Sex: Female
  Weight: 56 kg

DRUGS (3)
  1. MABTHERA [Suspect]
     Indication: SYSTEMIC SCLEROSIS
     Route: 042
     Dates: start: 20130304, end: 20130321
  2. TRACLEER [Concomitant]
     Indication: SYSTEMIC SCLEROSIS
     Route: 048
     Dates: start: 20080802, end: 20130412
  3. EREMFAT [Concomitant]
     Route: 048
     Dates: start: 20130220, end: 20130412

REACTIONS (1)
  - Death [Fatal]
